FAERS Safety Report 11613766 (Version 1)
Quarter: 2015Q4

REPORT INFORMATION
  Report Type: Spontaneous
  Country: RU (occurrence: RU)
  Receive Date: 20151008
  Receipt Date: 20151008
  Transmission Date: 20160304
  Serious: Yes (Hospitalization)
  Sender: FDA-Public Use
  Company Number: RU-UCBSA-2015031330

PATIENT
  Age: 8 Year
  Sex: Male

DRUGS (1)
  1. KEPPRA [Suspect]
     Active Substance: LEVETIRACETAM
     Indication: EPILEPSY
     Dosage: 500 MG, 2X/DAY (BID)
     Route: 048
     Dates: start: 20141225, end: 20150810

REACTIONS (2)
  - Flatulence [Not Recovered/Not Resolved]
  - Gastric atony [Not Recovered/Not Resolved]

NARRATIVE: CASE EVENT DATE: 2015
